FAERS Safety Report 5649392-6 (Version None)
Quarter: 2008Q1

REPORT INFORMATION
  Report Type: 
  Country: None (occurrence: None)
  Receive Date: 20080304
  Receipt Date: 20080122
  Transmission Date: 20080703
  Serious: No
  Sender: FDA-Public Use
  Company Number: US-BAYER-200812172NA

PATIENT
  Age: 24 Year
  Sex: Female

DRUGS (1)
  1. ULTRAVIST-300 PHARMACY BULK PACKAGE [Suspect]
     Indication: COMPUTERISED TOMOGRAM THORAX
     Route: 042
     Dates: start: 20080116, end: 20080116

REACTIONS (1)
  - RASH [None]
